FAERS Safety Report 6128498-1 (Version None)
Quarter: 2009Q1

REPORT INFORMATION
  Report Type: 
  Country: None (occurrence: None)
  Receive Date: 20090323
  Receipt Date: 20090318
  Transmission Date: 20090719
  Serious: Yes (Congenital Anomaly)
  Sender: FDA-Public Use
  Company Number: CH-BAYER-200820379GPV

PATIENT

DRUGS (5)
  1. ASPIRIN [Suspect]
     Indication: ESSENTIAL HYPERTENSION
     Route: 064
     Dates: end: 20080121
  2. LISITRIL / LISINOPRIL [Suspect]
     Indication: ESSENTIAL HYPERTENSION
     Route: 064
  3. COSAAR PLUS / HYDROCHLOROTHIAZIDE, LOSARTAN POTASSIUM 100 MG [Suspect]
     Indication: ESSENTIAL HYPERTENSION
     Route: 064
  4. ATENOLOL [Suspect]
     Indication: ESSENTIAL HYPERTENSION
     Route: 064
     Dates: end: 20080121
  5. ALDACTONE [Suspect]
     Indication: ESSENTIAL HYPERTENSION
     Route: 064
     Dates: end: 20080121

REACTIONS (3)
  - CAESAREAN SECTION [None]
  - FOETAL DISORDER [None]
  - RENAL FAILURE [None]
